FAERS Safety Report 22260726 (Version 1)
Quarter: 2023Q2

REPORT INFORMATION
  Report Type: Spontaneous
  Country: CA (occurrence: None)
  Receive Date: 20230427
  Receipt Date: 20230427
  Transmission Date: 20230722
  Serious: Yes (Hospitalization, Other)
  Sender: FDA-Public Use
  Company Number: 2023A098094

PATIENT
  Age: 49 Year
  Sex: Female

DRUGS (106)
  1. PROPOFOL [Interacting]
     Active Substance: PROPOFOL
     Indication: Induction of anaesthesia
     Dosage: 9 MG/KG
  2. QUETIAPINE FUMARATE [Interacting]
     Active Substance: QUETIAPINE FUMARATE
     Indication: Depression
     Dosage: 50 MG, QD(1 EVERY 1 DAYS)
  3. QUETIAPINE FUMARATE [Interacting]
     Active Substance: QUETIAPINE FUMARATE
     Indication: Anxiety
     Dosage: 50 MG, QD(1 EVERY 1 DAYS)
  4. QUETIAPINE FUMARATE [Interacting]
     Active Substance: QUETIAPINE FUMARATE
     Indication: Depression
     Dosage: 50 MG, QD(1 EVERY 1 DAYS)
  5. QUETIAPINE FUMARATE [Interacting]
     Active Substance: QUETIAPINE FUMARATE
     Indication: Anxiety
     Dosage: 50 MG, QD(1 EVERY 1 DAYS)
  6. QUETIAPINE FUMARATE [Interacting]
     Active Substance: QUETIAPINE FUMARATE
     Indication: Depression
     Dosage: 50 MG, QD(1 EVERY 1 DAYS)
  7. QUETIAPINE FUMARATE [Interacting]
     Active Substance: QUETIAPINE FUMARATE
     Indication: Anxiety
     Dosage: 50 MG, QD(1 EVERY 1 DAYS)
  8. QUETIAPINE FUMARATE [Interacting]
     Active Substance: QUETIAPINE FUMARATE
     Indication: Depression
     Dosage: 50 MG, QD(1 EVERY 1 DAYS)
  9. QUETIAPINE FUMARATE [Interacting]
     Active Substance: QUETIAPINE FUMARATE
     Indication: Anxiety
     Dosage: 50 MG, QD(1 EVERY 1 DAYS)
  10. QUETIAPINE FUMARATE [Interacting]
     Active Substance: QUETIAPINE FUMARATE
     Indication: Depression
     Dosage: 50 MG, QD(1 EVERY 1 DAYS)
  11. QUETIAPINE FUMARATE [Interacting]
     Active Substance: QUETIAPINE FUMARATE
     Indication: Anxiety
     Dosage: 50 MG, QD(1 EVERY 1 DAYS)
  12. QUETIAPINE FUMARATE [Interacting]
     Active Substance: QUETIAPINE FUMARATE
     Indication: Depression
     Dosage: 50 MG, QD(1 EVERY 1 DAYS)
  13. QUETIAPINE FUMARATE [Interacting]
     Active Substance: QUETIAPINE FUMARATE
     Indication: Anxiety
     Dosage: 50 MG, QD(1 EVERY 1 DAYS)
  14. QUETIAPINE FUMARATE [Interacting]
     Active Substance: QUETIAPINE FUMARATE
     Indication: Depression
     Dosage: 50 MG, QD(1 EVERY 1 DAYS)
  15. QUETIAPINE FUMARATE [Interacting]
     Active Substance: QUETIAPINE FUMARATE
     Indication: Anxiety
     Dosage: 50 MG, QD(1 EVERY 1 DAYS)
  16. QUETIAPINE FUMARATE [Interacting]
     Active Substance: QUETIAPINE FUMARATE
     Indication: Depression
     Dosage: 50 MG, QD(1 EVERY 1 DAYS)
  17. QUETIAPINE FUMARATE [Interacting]
     Active Substance: QUETIAPINE FUMARATE
     Indication: Anxiety
     Dosage: 50 MG, QD(1 EVERY 1 DAYS)
  18. QUETIAPINE FUMARATE [Interacting]
     Active Substance: QUETIAPINE FUMARATE
     Indication: Depression
     Dosage: 50 MG, QD(1 EVERY 1 DAYS)
  19. QUETIAPINE FUMARATE [Interacting]
     Active Substance: QUETIAPINE FUMARATE
     Indication: Anxiety
     Dosage: 50 MG, QD(1 EVERY 1 DAYS)
  20. QUETIAPINE FUMARATE [Interacting]
     Active Substance: QUETIAPINE FUMARATE
     Indication: Depression
     Dosage: 50 MG, QD(1 EVERY 1 DAYS)
  21. QUETIAPINE FUMARATE [Interacting]
     Active Substance: QUETIAPINE FUMARATE
     Indication: Anxiety
     Dosage: 50 MG, QD(1 EVERY 1 DAYS)
  22. QUETIAPINE FUMARATE [Interacting]
     Active Substance: QUETIAPINE FUMARATE
     Indication: Depression
     Dosage: 50 MG, QD(1 EVERY 1 DAYS)
  23. QUETIAPINE FUMARATE [Interacting]
     Active Substance: QUETIAPINE FUMARATE
     Indication: Anxiety
     Dosage: 50 MG, QD(1 EVERY 1 DAYS)
  24. QUETIAPINE FUMARATE [Interacting]
     Active Substance: QUETIAPINE FUMARATE
     Indication: Depression
     Dosage: 50 MG, QD(1 EVERY 1 DAYS)
  25. QUETIAPINE FUMARATE [Interacting]
     Active Substance: QUETIAPINE FUMARATE
     Indication: Anxiety
     Dosage: 50 MG, QD(1 EVERY 1 DAYS)
  26. QUETIAPINE FUMARATE [Interacting]
     Active Substance: QUETIAPINE FUMARATE
     Indication: Depression
     Dosage: 50 MG, QD(1 EVERY 1 DAYS)
  27. QUETIAPINE FUMARATE [Interacting]
     Active Substance: QUETIAPINE FUMARATE
     Indication: Anxiety
     Dosage: 50 MG, QD(1 EVERY 1 DAYS)
  28. QUETIAPINE FUMARATE [Interacting]
     Active Substance: QUETIAPINE FUMARATE
     Indication: Depression
     Dosage: 50 MG, QD(1 EVERY 1 DAYS)
  29. QUETIAPINE FUMARATE [Interacting]
     Active Substance: QUETIAPINE FUMARATE
     Indication: Anxiety
     Dosage: 50 MG, QD(1 EVERY 1 DAYS)
  30. QUETIAPINE FUMARATE [Interacting]
     Active Substance: QUETIAPINE FUMARATE
     Indication: Depression
     Dosage: 50 MG, QD(1 EVERY 1 DAYS)
  31. QUETIAPINE FUMARATE [Interacting]
     Active Substance: QUETIAPINE FUMARATE
     Indication: Anxiety
     Dosage: 50 MG, QD(1 EVERY 1 DAYS)
  32. QUETIAPINE FUMARATE [Interacting]
     Active Substance: QUETIAPINE FUMARATE
     Indication: Depression
     Dosage: 50 MG, QD(1 EVERY 1 DAYS)
  33. QUETIAPINE FUMARATE [Interacting]
     Active Substance: QUETIAPINE FUMARATE
     Indication: Anxiety
     Dosage: 50 MG, QD(1 EVERY 1 DAYS)
  34. CLONAZEPAM [Interacting]
     Active Substance: CLONAZEPAM
     Indication: Depression
     Dosage: 0.5 MG
  35. CLONAZEPAM [Interacting]
     Active Substance: CLONAZEPAM
     Indication: Anxiety
     Dosage: 0.5 MG
  36. CLONAZEPAM [Interacting]
     Active Substance: CLONAZEPAM
     Indication: Depression
     Dosage: 0.5 MG
  37. CLONAZEPAM [Interacting]
     Active Substance: CLONAZEPAM
     Indication: Anxiety
     Dosage: 0.5 MG
  38. CLONAZEPAM [Interacting]
     Active Substance: CLONAZEPAM
     Indication: Depression
     Dosage: 0.5 MG
  39. CLONAZEPAM [Interacting]
     Active Substance: CLONAZEPAM
     Indication: Anxiety
     Dosage: 0.5 MG
  40. CLONAZEPAM [Interacting]
     Active Substance: CLONAZEPAM
     Indication: Depression
     Dosage: 0.5 MG
  41. CLONAZEPAM [Interacting]
     Active Substance: CLONAZEPAM
     Indication: Anxiety
     Dosage: 0.5 MG
  42. CLONAZEPAM [Interacting]
     Active Substance: CLONAZEPAM
     Indication: Depression
     Dosage: 0.5 MG
  43. CLONAZEPAM [Interacting]
     Active Substance: CLONAZEPAM
     Indication: Anxiety
     Dosage: 0.5 MG
  44. CLONAZEPAM [Interacting]
     Active Substance: CLONAZEPAM
     Indication: Depression
     Dosage: 0.5 MG
  45. CLONAZEPAM [Interacting]
     Active Substance: CLONAZEPAM
     Indication: Anxiety
     Dosage: 0.5 MG
  46. CLONAZEPAM [Interacting]
     Active Substance: CLONAZEPAM
     Indication: Depression
     Dosage: 0.5 MG
  47. CLONAZEPAM [Interacting]
     Active Substance: CLONAZEPAM
     Indication: Anxiety
     Dosage: 0.5 MG
  48. CLONAZEPAM [Interacting]
     Active Substance: CLONAZEPAM
     Indication: Depression
     Dosage: 0.5 MG
  49. CLONAZEPAM [Interacting]
     Active Substance: CLONAZEPAM
     Indication: Anxiety
     Dosage: 0.5 MG
  50. CLONAZEPAM [Interacting]
     Active Substance: CLONAZEPAM
     Indication: Depression
     Dosage: 0.5 MG
  51. CLONAZEPAM [Interacting]
     Active Substance: CLONAZEPAM
     Indication: Anxiety
     Dosage: 0.5 MG
  52. CLONAZEPAM [Interacting]
     Active Substance: CLONAZEPAM
     Indication: Depression
     Dosage: 0.5 MG
  53. CLONAZEPAM [Interacting]
     Active Substance: CLONAZEPAM
     Indication: Anxiety
     Dosage: 0.5 MG
  54. CLONAZEPAM [Interacting]
     Active Substance: CLONAZEPAM
     Indication: Depression
     Dosage: 0.5 MG
  55. CLONAZEPAM [Interacting]
     Active Substance: CLONAZEPAM
     Indication: Anxiety
     Dosage: 0.5 MG
  56. CLONAZEPAM [Interacting]
     Active Substance: CLONAZEPAM
     Indication: Depression
     Dosage: 0.5 MG
  57. CLONAZEPAM [Interacting]
     Active Substance: CLONAZEPAM
     Indication: Anxiety
     Dosage: 0.5 MG
  58. CLONAZEPAM [Interacting]
     Active Substance: CLONAZEPAM
     Indication: Depression
     Dosage: 0.5 MG
  59. CLONAZEPAM [Interacting]
     Active Substance: CLONAZEPAM
     Indication: Anxiety
     Dosage: 0.5 MG
  60. CLONAZEPAM [Interacting]
     Active Substance: CLONAZEPAM
     Indication: Depression
     Dosage: 0.5 MG
  61. CLONAZEPAM [Interacting]
     Active Substance: CLONAZEPAM
     Indication: Anxiety
     Dosage: 0.5 MG
  62. CLONAZEPAM [Interacting]
     Active Substance: CLONAZEPAM
     Indication: Depression
     Dosage: 0.5 MG
  63. CLONAZEPAM [Interacting]
     Active Substance: CLONAZEPAM
     Indication: Anxiety
     Dosage: 0.5 MG
  64. CLONAZEPAM [Interacting]
     Active Substance: CLONAZEPAM
     Indication: Depression
     Dosage: 0.5 MG
  65. CLONAZEPAM [Interacting]
     Active Substance: CLONAZEPAM
     Indication: Anxiety
     Dosage: 0.5 MG
  66. DIAZEPAM [Interacting]
     Active Substance: DIAZEPAM
     Indication: Preoperative care
     Dosage: 10 MG
  67. FENTANYL [Interacting]
     Active Substance: FENTANYL
     Indication: Anaesthesia
     Dosage: 13 DOSAGE FORM
     Route: 042
  68. FLUVOXAMINE MALEATE [Interacting]
     Active Substance: FLUVOXAMINE MALEATE
     Indication: Product used for unknown indication
     Dosage: UNK
  69. MEPERIDINE [Interacting]
     Active Substance: MEPERIDINE
     Indication: Product used for unknown indication
     Dosage: UNK
  70. METHYLENE BLUE [Interacting]
     Active Substance: METHYLENE BLUE
     Indication: Hypotension
     Dosage: 1 MG/KG
  71. MIDAZOLAM HYDROCHLORIDE [Interacting]
     Active Substance: MIDAZOLAM HYDROCHLORIDE
     Indication: Anaesthesia
     Dosage: 0.3 DOSAGE FORM
  72. NOREPINEPHRINE BITARTRATE [Interacting]
     Active Substance: NOREPINEPHRINE BITARTRATE
     Indication: Hypotension
     Dosage: UNK
  73. PAROXETINE HYDROCHLORIDE [Interacting]
     Active Substance: PAROXETINE HYDROCHLORIDE
     Indication: Depression
     Dosage: 40 MG
  74. PAROXETINE HYDROCHLORIDE [Interacting]
     Active Substance: PAROXETINE HYDROCHLORIDE
     Indication: Anxiety
     Dosage: 40 MG
  75. PAROXETINE HYDROCHLORIDE [Interacting]
     Active Substance: PAROXETINE HYDROCHLORIDE
     Indication: Depression
     Dosage: 40 MG
  76. PAROXETINE HYDROCHLORIDE [Interacting]
     Active Substance: PAROXETINE HYDROCHLORIDE
     Indication: Anxiety
     Dosage: 40 MG
  77. PAROXETINE HYDROCHLORIDE [Interacting]
     Active Substance: PAROXETINE HYDROCHLORIDE
     Indication: Depression
     Dosage: 40 MG
  78. PAROXETINE HYDROCHLORIDE [Interacting]
     Active Substance: PAROXETINE HYDROCHLORIDE
     Indication: Anxiety
     Dosage: 40 MG
  79. PAROXETINE HYDROCHLORIDE [Interacting]
     Active Substance: PAROXETINE HYDROCHLORIDE
     Indication: Depression
     Dosage: 40 MG
  80. PAROXETINE HYDROCHLORIDE [Interacting]
     Active Substance: PAROXETINE HYDROCHLORIDE
     Indication: Anxiety
     Dosage: 40 MG
  81. PAROXETINE HYDROCHLORIDE [Interacting]
     Active Substance: PAROXETINE HYDROCHLORIDE
     Indication: Depression
     Dosage: 40 MG
  82. PAROXETINE HYDROCHLORIDE [Interacting]
     Active Substance: PAROXETINE HYDROCHLORIDE
     Indication: Anxiety
     Dosage: 40 MG
  83. PAROXETINE HYDROCHLORIDE [Interacting]
     Active Substance: PAROXETINE HYDROCHLORIDE
     Indication: Depression
     Dosage: 40 MG
  84. PAROXETINE HYDROCHLORIDE [Interacting]
     Active Substance: PAROXETINE HYDROCHLORIDE
     Indication: Anxiety
     Dosage: 40 MG
  85. PAROXETINE HYDROCHLORIDE [Interacting]
     Active Substance: PAROXETINE HYDROCHLORIDE
     Indication: Depression
     Dosage: 40 MG
  86. PAROXETINE HYDROCHLORIDE [Interacting]
     Active Substance: PAROXETINE HYDROCHLORIDE
     Indication: Anxiety
     Dosage: 40 MG
  87. PAROXETINE HYDROCHLORIDE [Interacting]
     Active Substance: PAROXETINE HYDROCHLORIDE
     Indication: Depression
     Dosage: 40 MG
  88. PAROXETINE HYDROCHLORIDE [Interacting]
     Active Substance: PAROXETINE HYDROCHLORIDE
     Indication: Anxiety
     Dosage: 40 MG
  89. PAROXETINE HYDROCHLORIDE [Interacting]
     Active Substance: PAROXETINE HYDROCHLORIDE
     Indication: Depression
     Dosage: 40 MG
  90. PAROXETINE HYDROCHLORIDE [Interacting]
     Active Substance: PAROXETINE HYDROCHLORIDE
     Indication: Anxiety
     Dosage: 40 MG
  91. PAROXETINE HYDROCHLORIDE [Interacting]
     Active Substance: PAROXETINE HYDROCHLORIDE
     Indication: Depression
     Dosage: 40 MG
  92. PAROXETINE HYDROCHLORIDE [Interacting]
     Active Substance: PAROXETINE HYDROCHLORIDE
     Indication: Anxiety
     Dosage: 40 MG
  93. PAROXETINE HYDROCHLORIDE [Interacting]
     Active Substance: PAROXETINE HYDROCHLORIDE
     Indication: Depression
     Dosage: 40 MG
  94. PAROXETINE HYDROCHLORIDE [Interacting]
     Active Substance: PAROXETINE HYDROCHLORIDE
     Indication: Anxiety
     Dosage: 40 MG
  95. PAROXETINE HYDROCHLORIDE [Interacting]
     Active Substance: PAROXETINE HYDROCHLORIDE
     Indication: Depression
     Dosage: 40 MG
  96. PAROXETINE HYDROCHLORIDE [Interacting]
     Active Substance: PAROXETINE HYDROCHLORIDE
     Indication: Anxiety
     Dosage: 40 MG
  97. PAROXETINE HYDROCHLORIDE [Interacting]
     Active Substance: PAROXETINE HYDROCHLORIDE
     Indication: Depression
     Dosage: 40 MG
  98. PAROXETINE HYDROCHLORIDE [Interacting]
     Active Substance: PAROXETINE HYDROCHLORIDE
     Indication: Anxiety
     Dosage: 40 MG
  99. PAROXETINE HYDROCHLORIDE [Interacting]
     Active Substance: PAROXETINE HYDROCHLORIDE
     Indication: Depression
     Dosage: 40 MG
  100. PAROXETINE HYDROCHLORIDE [Interacting]
     Active Substance: PAROXETINE HYDROCHLORIDE
     Indication: Anxiety
     Dosage: 40 MG
  101. PAROXETINE HYDROCHLORIDE [Interacting]
     Active Substance: PAROXETINE HYDROCHLORIDE
     Indication: Depression
     Dosage: 40 MG
  102. PAROXETINE HYDROCHLORIDE [Interacting]
     Active Substance: PAROXETINE HYDROCHLORIDE
     Indication: Anxiety
     Dosage: 40 MG
  103. PAROXETINE HYDROCHLORIDE [Interacting]
     Active Substance: PAROXETINE HYDROCHLORIDE
     Indication: Depression
     Dosage: 40 MG
  104. PAROXETINE HYDROCHLORIDE [Interacting]
     Active Substance: PAROXETINE HYDROCHLORIDE
     Indication: Anxiety
     Dosage: 40 MG
  105. ROCURONIUM [Interacting]
     Active Substance: ROCURONIUM BROMIDE
     Indication: Hypotonia
     Dosage: 1 MG/KG
  106. SEVOFLURANE [Interacting]
     Active Substance: SEVOFLURANE
     Indication: Maintenance of anaesthesia
     Dosage: UNK
     Route: 055

REACTIONS (11)
  - Drug interaction [Unknown]
  - Alanine aminotransferase increased [Recovered/Resolved]
  - Amylase increased [Recovered/Resolved]
  - Blood creatine phosphokinase increased [Recovered/Resolved]
  - Blood lactate dehydrogenase increased [Recovered/Resolved]
  - Blood potassium increased [Recovered/Resolved]
  - Myoglobin urine present [Recovered/Resolved]
  - Serotonin syndrome [Recovered/Resolved]
  - Toxic encephalopathy [Recovered/Resolved]
  - Troponin increased [Recovered/Resolved]
  - Hypotension [Recovered/Resolved]
